FAERS Safety Report 8304067-X (Version None)
Quarter: 2012Q2

REPORT INFORMATION
  Report Type: 
  Country: None (occurrence: None)
  Receive Date: 20120423
  Receipt Date: 20120412
  Transmission Date: 20120825
  Serious: Yes (Hospitalization)
  Sender: FDA-Public Use
  Company Number: DE-BRISTOL-MYERS SQUIBB COMPANY-16518193

PATIENT
  Age: 60 Year
  Sex: Female

DRUGS (16)
  1. AMITRIPTYLINE HCL [Concomitant]
     Dates: start: 20100301
  2. PEMETREXED [Suspect]
     Indication: NON-SMALL CELL LUNG CANCER
     Route: 042
     Dates: start: 20100512
  3. LORAZEPAM [Concomitant]
  4. MOVIPREP [Concomitant]
  5. CALCIUM CARBONATE [Concomitant]
     Dates: start: 20100301
  6. PREDNISOLONE [Concomitant]
  7. SPIRIVA [Concomitant]
  8. ACETYLCYSTEINE [Concomitant]
     Dates: start: 20080128
  9. ZOLPIDEM [Concomitant]
  10. NALOXONE [Concomitant]
  11. SYMBICORT [Concomitant]
  12. NEXIUM [Concomitant]
     Dates: start: 20100301
  13. IBUPROFEN TABLETS [Concomitant]
  14. MORPHINE SULFATE [Concomitant]
     Dates: start: 20100301
  15. DIPYRONE TAB [Concomitant]
  16. CISPLATIN [Suspect]
     Indication: NON-SMALL CELL LUNG CANCER
     Route: 042
     Dates: start: 20100512

REACTIONS (3)
  - GENERAL PHYSICAL HEALTH DETERIORATION [None]
  - TACHYCARDIA [None]
  - ANGINA PECTORIS [None]
